FAERS Safety Report 22362213 (Version 1)
Quarter: 2023Q2

REPORT INFORMATION
  Report Type: Spontaneous
  Country: IT (occurrence: IT)
  Receive Date: 20230524
  Receipt Date: 20230524
  Transmission Date: 20230722
  Serious: Yes (Other)
  Sender: FDA-Public Use
  Company Number: IT-002147023-NVSC2023IT116208

PATIENT
  Sex: Female
  Weight: 76 kg

DRUGS (2)
  1. HYRIMOZ [Suspect]
     Active Substance: ADALIMUMAB-ADAZ
     Indication: Spondylitis
     Dosage: 40 MG, Q2W
     Route: 058
     Dates: start: 20210823, end: 20221027
  2. SALAZOPYRINE [Concomitant]
     Active Substance: SULFASALAZINE
     Indication: Spondylitis
     Dosage: 500 MG (6 TABLET TS PER DAY)
     Route: 048
     Dates: start: 20181108

REACTIONS (2)
  - Dactylitis [Not Recovered/Not Resolved]
  - Spondylitis [Not Recovered/Not Resolved]

NARRATIVE: CASE EVENT DATE: 20221007
